FAERS Safety Report 6170202-5 (Version None)
Quarter: 2009Q2

REPORT INFORMATION
  Report Type: 
  Country: None (occurrence: None)
  Receive Date: 20090428
  Receipt Date: 20090420
  Transmission Date: 20091009
  Serious: Yes (Other)
  Sender: FDA-Public Use
  Company Number: PHHY2009RO15062

PATIENT
  Age: 41 Year
  Sex: Female

DRUGS (1)
  1. LEPONEX [Suspect]
     Indication: SCHIZOPHRENIA

REACTIONS (2)
  - POLYCYTHAEMIA VERA [None]
  - RED BLOOD CELL COUNT INCREASED [None]
